FAERS Safety Report 4355623-5 (Version None)
Quarter: 2004Q2

REPORT INFORMATION
  Report Type: 
  Country: None (occurrence: None)
  Receive Date: 20040505
  Receipt Date: 20040416
  Transmission Date: 20050107
  Serious: Yes (Hospitalization)
  Sender: FDA-Public Use
  Company Number: DSA_24247_2004

PATIENT
  Age: 71 Year
  Sex: Male

DRUGS (2)
  1. LORAZEPAM [Suspect]
  2. OXAZEPAM [Suspect]

REACTIONS (11)
  - ACOUSTIC NEUROMA [None]
  - BRADYCARDIA [None]
  - CHEYNE-STOKES RESPIRATION [None]
  - COMA [None]
  - DEAFNESS NEUROSENSORY [None]
  - DRUG LEVEL INCREASED [None]
  - HYPOTENSION [None]
  - HYPOVENTILATION [None]
  - MEDICATION ERROR [None]
  - STUPOR [None]
  - VICTIM OF SPOUSAL ABUSE [None]
